FAERS Safety Report 6860818-2 (Version None)
Quarter: 2010Q3

REPORT INFORMATION
  Report Type: 
  Country: None (occurrence: None)
  Receive Date: 20100720
  Receipt Date: 20100716
  Transmission Date: 20110219
  Serious: Yes (Other)
  Sender: FDA-Public Use
  Company Number: FR-MERCK-1007FRA00081

PATIENT
  Age: 72 Year
  Sex: Male

DRUGS (6)
  1. TIMOPTIC [Suspect]
     Indication: GLAUCOMA
     Route: 047
     Dates: start: 20020101, end: 20100501
  2. DORZOLAMIDE HYDROCHLORIDE AND TIMOLOL MALEATE [Suspect]
     Indication: GLAUCOMA
     Route: 047
     Dates: start: 20100501
  3. BISOPROLOL [Concomitant]
     Indication: HYPERTENSION
     Route: 048
  4. AMLODIPINE BESYLATE [Concomitant]
     Indication: HYPERTENSION
     Route: 048
  5. ENALAPRIL MALEATE [Concomitant]
     Indication: HYPERTENSION
     Route: 048
  6. ARTICAINE HYDROCHLORIDE AND EPINEPHRINE [Suspect]
     Indication: DENTAL CARE
     Route: 051
     Dates: start: 20100323, end: 20100323

REACTIONS (3)
  - BLINDNESS [None]
  - HYPOAESTHESIA [None]
  - RETINAL VEIN OCCLUSION [None]
